FAERS Safety Report 13618090 (Version 2)
Quarter: 2017Q2

REPORT INFORMATION
  Report Type: Spontaneous
  Country: US (occurrence: US)
  Receive Date: 20170606
  Receipt Date: 20170607
  Transmission Date: 20170830
  Serious: No
  Sender: FDA-Public Use
  Company Number: US-BIOMARINAP-US-2017-114189

PATIENT
  Sex: Female
  Weight: 13.16 kg

DRUGS (1)
  1. KUVAN [Suspect]
     Active Substance: SAPROPTERIN DIHYDROCHLORIDE
     Indication: PHENYLKETONURIA
     Dosage: 210 MG, QD
     Route: 048
     Dates: start: 20150121

REACTIONS (2)
  - Anger [Unknown]
  - Aggression [Unknown]
